FAERS Safety Report 10022643 (Version 1)
Quarter: 2014Q1

REPORT INFORMATION
  Report Type: Spontaneous
  Country: GB (occurrence: GB)
  Receive Date: 20140319
  Receipt Date: 20140319
  Transmission Date: 20141002
  Serious: Yes (Other)
  Sender: FDA-Public Use
  Company Number: GB-ENDO PHARMACEUTICALS INC.-AVEE20140003

PATIENT
  Age: 30 Year
  Sex: Male

DRUGS (1)
  1. AVEED [Suspect]
     Indication: BLOOD TESTOSTERONE DECREASED
     Route: 030
     Dates: start: 201302

REACTIONS (5)
  - Infertility male [Unknown]
  - Attention deficit/hyperactivity disorder [Unknown]
  - Muscular weakness [Unknown]
  - Fatigue [Unknown]
  - Depressed mood [Unknown]
